FAERS Safety Report 9527160 (Version 1)
Quarter: 2013Q3

REPORT INFORMATION
  Report Type: Report from Study
  Country: DE (occurrence: DE)
  Receive Date: 20130916
  Receipt Date: 20130916
  Transmission Date: 20140515
  Serious: Yes (Hospitalization)
  Sender: FDA-Public Use
  Company Number: DE-ABBVIE-13P-062-1145002-00

PATIENT
  Sex: Male
  Weight: 90 kg

DRUGS (3)
  1. HUMIRA [Suspect]
     Indication: PSORIASIS
     Dates: start: 20111019
  2. ENBREL [Concomitant]
     Indication: PRODUCT USED FOR UNKNOWN INDICATION
  3. OMEPRAZOLE [Concomitant]
     Indication: PRODUCT USED FOR UNKNOWN INDICATION

REACTIONS (5)
  - Pulmonary contusion [Recovered/Resolved]
  - Rib fracture [Recovered/Resolved]
  - Scapula fracture [Recovered/Resolved]
  - Clavicle fracture [Recovered/Resolved]
  - Road traffic accident [Recovered/Resolved]
